FAERS Safety Report 7032440-9 (Version None)
Quarter: 2010Q4

REPORT INFORMATION
  Report Type: 
  Country: None (occurrence: None)
  Receive Date: 20101007
  Receipt Date: 20100927
  Transmission Date: 20110411
  Serious: No
  Sender: FDA-Public Use
  Company Number: US-B.I. PHARMACEUTICALS,INC./RIDGEFIELD-2010-BP-10387BP

PATIENT
  Sex: Female

DRUGS (6)
  1. SPIRIVA [Suspect]
     Indication: DYSPNOEA
     Dosage: 18 MCG
     Route: 055
     Dates: start: 20100527, end: 20100823
  2. SPIRIVA [Suspect]
     Route: 055
     Dates: end: 20100823
  3. COZAAR [Concomitant]
     Indication: HYPERTENSION
     Dosage: 25 MG
     Route: 048
  4. ALOPURINAL [Concomitant]
     Indication: PROPHYLAXIS
     Dosage: 300 MG
     Route: 048
  5. LEVOXYL [Concomitant]
     Indication: HYPOTHYROIDISM
     Dosage: 125 MG
     Route: 048
  6. ADVAIR DISKUS 100/50 [Concomitant]
     Indication: DYSPNOEA
     Route: 055

REACTIONS (3)
  - EYE IRRITATION [None]
  - EYE PAIN [None]
  - VISION BLURRED [None]
